FAERS Safety Report 4433834-8 (Version None)
Quarter: 2004Q3

REPORT INFORMATION
  Report Type: 
  Country: None (occurrence: None)
  Receive Date: 20040825
  Receipt Date: 20030306
  Transmission Date: 20050211
  Serious: Yes (Death)
  Sender: FDA-Public Use
  Company Number: 2003-UK-00153UK

PATIENT
  Age: 62 Year
  Sex: Female

DRUGS (5)
  1. SPIRIVA [Suspect]
     Dosage: 18 MCG (18 MCG, IH)
     Route: 055
     Dates: start: 20021219
  2. ESCITALOPRAM OXALATE [Suspect]
     Dosage: 10 MG
     Dates: start: 20021213
  3. TEMAZEPAM [Concomitant]
  4. BUDESONIDE (BUDESONIDE) [Concomitant]
  5. MORPHINE [Concomitant]

REACTIONS (2)
  - SUDDEN DEATH [None]
  - UNEVALUABLE EVENT [None]
